FAERS Safety Report 25726067 (Version 2)
Quarter: 2025Q3

REPORT INFORMATION
  Report Type: Spontaneous
  Country: US (occurrence: US)
  Receive Date: 20250826
  Receipt Date: 20250913
  Transmission Date: 20251020
  Serious: Yes (Other)
  Sender: AUROBINDO
  Company Number: US-MLMSERVICE-20250813-PI606201-00108-2

PATIENT
  Age: 21 Year
  Sex: Female

DRUGS (10)
  1. CLOZAPINE [Suspect]
     Active Substance: CLOZAPINE
     Indication: Schizophrenia
     Route: 065
  2. CLOZAPINE [Suspect]
     Active Substance: CLOZAPINE
     Indication: Oculogyric crisis
     Route: 048
  3. CLOZAPINE [Suspect]
     Active Substance: CLOZAPINE
     Route: 065
  4. CLOZAPINE [Suspect]
     Active Substance: CLOZAPINE
     Route: 065
  5. DIPHENHYDRAMINE [Suspect]
     Active Substance: DIPHENHYDRAMINE
     Indication: Oculogyric crisis
     Route: 065
  6. DEUTETRABENAZINE [Suspect]
     Active Substance: DEUTETRABENAZINE
     Indication: Oculogyric crisis
     Route: 065
  7. BENZTROPINE [Suspect]
     Active Substance: BENZTROPINE
     Indication: Oculogyric crisis
     Route: 065
  8. ARIPIPRAZOLE [Concomitant]
     Active Substance: ARIPIPRAZOLE
     Indication: Schizophrenia
     Route: 065
  9. LAMOTRIGINE [Concomitant]
     Active Substance: LAMOTRIGINE
     Indication: Oculogyric crisis
     Route: 065
  10. LAMOTRIGINE [Concomitant]
     Active Substance: LAMOTRIGINE
     Dosage: 150 MILLIGRAM, TWO TIMES A DAY
     Route: 065

REACTIONS (5)
  - Seizure like phenomena [Recovered/Resolved]
  - Condition aggravated [Recovered/Resolved]
  - Weight increased [Unknown]
  - Postictal state [Recovered/Resolved]
  - Drug ineffective [Unknown]
